FAERS Safety Report 9523266 (Version 1)
Quarter: 2013Q3

REPORT INFORMATION
  Report Type: Spontaneous
  Country: NO (occurrence: NO)
  Receive Date: 20130913
  Receipt Date: 20130913
  Transmission Date: 20140515
  Serious: Yes (Death, Other)
  Sender: FDA-Public Use
  Company Number: NO-PFIZER INC-2013262611

PATIENT
  Age: 73 Year
  Sex: Female

DRUGS (3)
  1. FLUDARABINE PHOSPHATE [Suspect]
     Dosage: UNK
  2. CYCLOPHOSPHAMIDE [Suspect]
     Dosage: UNK
  3. RITUXIMAB [Suspect]
     Dosage: UNK

REACTIONS (5)
  - Autoimmune haemolytic anaemia [Fatal]
  - Cerebral haemorrhage [Fatal]
  - Subdural haemorrhage [Fatal]
  - Thrombocytopenia [Fatal]
  - Haemolysis [Not Recovered/Not Resolved]
